FAERS Safety Report 20060211 (Version 1)
Quarter: 2021Q4

REPORT INFORMATION
  Report Type: Spontaneous
  Country: US (occurrence: US)
  Receive Date: 20211111
  Receipt Date: 20211111
  Transmission Date: 20220303
  Serious: No
  Sender: FDA-Public Use
  Company Number: US-SUN PHARMACEUTICAL INDUSTRIES LTD-2021R1-282260

PATIENT
  Sex: Male
  Weight: 104.33 kg

DRUGS (1)
  1. FLUMADINE [Suspect]
     Active Substance: RIMANTADINE HYDROCHLORIDE
     Indication: Upper respiratory tract infection
     Dosage: UNK
     Route: 065

REACTIONS (2)
  - Feeling abnormal [Unknown]
  - Hepatic enzyme increased [Unknown]

NARRATIVE: CASE EVENT DATE: 19960101
